FAERS Safety Report 13341933 (Version 1)
Quarter: 2017Q1

REPORT INFORMATION
  Report Type: Spontaneous
  Country: US (occurrence: US)
  Receive Date: 20170316
  Receipt Date: 20170316
  Transmission Date: 20170428
  Serious: Yes (Hospitalization)
  Sender: FDA-Public Use
  Company Number: US-ROCHE-1015218

PATIENT
  Age: 40 Year
  Sex: Female

DRUGS (1)
  1. ORLISTAT [Suspect]
     Active Substance: ORLISTAT
     Indication: OBESITY
     Route: 065

REACTIONS (1)
  - Hepatic failure [Recovering/Resolving]
